FAERS Safety Report 16449971 (Version 12)
Quarter: 2023Q1

REPORT INFORMATION
  Report Type: Report from Study
  Country: US (occurrence: US)
  Receive Date: 20190619
  Receipt Date: 20230330
  Transmission Date: 20230418
  Serious: Yes (Disabling)
  Sender: FDA-Public Use
  Company Number: US-KYOWAKIRIN-2019BKK004573

PATIENT

DRUGS (24)
  1. CRYSVITA [Suspect]
     Active Substance: BUROSUMAB-TWZA
     Indication: Hereditary hypophosphataemic rickets
     Dosage: 90 MG, 1X/4 WEEKS
     Route: 058
     Dates: start: 20190314
  2. CRYSVITA [Suspect]
     Active Substance: BUROSUMAB-TWZA
     Dosage: HALF DOSE, 1X/2 WEEKS
     Route: 058
  3. CRYSVITA [Suspect]
     Active Substance: BUROSUMAB-TWZA
     Indication: Hereditary hypophosphataemic rickets
     Dosage: 60 MG, 1X/4 WEEKS
     Route: 058
  4. CRYSVITA [Suspect]
     Active Substance: BUROSUMAB-TWZA
     Dosage: 90 MG, 1X/4 WEEKS
     Route: 058
  5. CRYSVITA [Suspect]
     Active Substance: BUROSUMAB-TWZA
     Dosage: 90 MG, 1X/4 WEEKS
     Route: 058
  6. CRYSVITA [Suspect]
     Active Substance: BUROSUMAB-TWZA
     Dosage: 90 MG, 1X/4 WEEKS
     Route: 058
  7. CRYSVITA [Suspect]
     Active Substance: BUROSUMAB-TWZA
     Dosage: 80 MG, 1X/4 WEEKS
     Route: 058
  8. CRYSVITA [Suspect]
     Active Substance: BUROSUMAB-TWZA
     Dosage: 80 MG, EVERY 4 WEEKS
     Route: 058
  9. CRYSVITA [Suspect]
     Active Substance: BUROSUMAB-TWZA
     Indication: Hereditary hypophosphataemic rickets
     Dosage: UNK
     Route: 058
  10. CRYSVITA [Suspect]
     Active Substance: BUROSUMAB-TWZA
     Indication: Hereditary hypophosphataemic rickets
     Dosage: UNK
     Route: 058
     Dates: start: 2018
  11. EUFLEXXA [Suspect]
     Active Substance: HYALURONATE SODIUM
     Indication: Fibromyalgia
     Dosage: UNK, INTO HER KNEE
     Route: 014
  12. EFFEXOR XR [Concomitant]
     Active Substance: VENLAFAXINE HYDROCHLORIDE
     Indication: Product used for unknown indication
     Dosage: UNKNOWN
     Route: 065
  13. LORAZEPAM [Concomitant]
     Active Substance: LORAZEPAM
     Indication: Product used for unknown indication
     Dosage: UNKNOWN
     Route: 065
  14. AMBIEN [Concomitant]
     Active Substance: ZOLPIDEM TARTRATE
     Indication: Product used for unknown indication
     Dosage: UNKNOWN
     Route: 065
  15. LISINOPRIL [Concomitant]
     Active Substance: LISINOPRIL
     Indication: Product used for unknown indication
     Dosage: UNKNOWN
     Route: 065
  16. GABAPENTIN [Concomitant]
     Active Substance: GABAPENTIN
     Indication: Product used for unknown indication
     Dosage: UNKNOWN
     Route: 065
  17. VITAMIN D2 [Concomitant]
     Active Substance: ERGOCALCIFEROL
     Indication: Product used for unknown indication
     Dosage: UNK
     Route: 065
  18. TRAMADOL [Concomitant]
     Active Substance: TRAMADOL
     Indication: Product used for unknown indication
     Dosage: UNK
     Route: 065
  19. IBUPROFEN [Concomitant]
     Active Substance: IBUPROFEN
     Indication: Product used for unknown indication
     Dosage: UNK
     Route: 065
  20. ATIVAN [Concomitant]
     Active Substance: LORAZEPAM
     Indication: Product used for unknown indication
     Dosage: UNK
     Route: 065
  21. CYCLOBENZAPRINE [Concomitant]
     Active Substance: CYCLOBENZAPRINE
     Indication: Product used for unknown indication
     Dosage: UNK
     Route: 065
  22. LISINOPRIL AND HYDROCHLOROTHIAZIDE [Concomitant]
     Active Substance: HYDROCHLOROTHIAZIDE\LISINOPRIL
     Indication: Product used for unknown indication
     Dosage: UNK
     Route: 065
  23. VERAPAMIL HCL [Concomitant]
     Active Substance: VERAPAMIL HYDROCHLORIDE
     Indication: Product used for unknown indication
     Dosage: 40 MG
     Route: 065
  24. JARDIANCE [Concomitant]
     Active Substance: EMPAGLIFLOZIN
     Indication: Product used for unknown indication
     Dosage: 10 MG
     Route: 065

REACTIONS (22)
  - Bedridden [Unknown]
  - Exostosis [Not Recovered/Not Resolved]
  - Bone pain [Not Recovered/Not Resolved]
  - Pain [Not Recovered/Not Resolved]
  - Arthralgia [Not Recovered/Not Resolved]
  - Pain in extremity [Not Recovered/Not Resolved]
  - Nasopharyngitis [Unknown]
  - Cystitis [Recovering/Resolving]
  - Pain [Not Recovered/Not Resolved]
  - Fall [Unknown]
  - Scratch [Unknown]
  - Fatigue [Unknown]
  - Contusion [Unknown]
  - Back pain [Not Recovered/Not Resolved]
  - Restless legs syndrome [Unknown]
  - Injection site pain [Recovered/Resolved]
  - Product dose omission issue [Recovered/Resolved]
  - Product storage error [Unknown]
  - Prescribed underdose [Unknown]
  - Inappropriate schedule of product administration [Unknown]
  - Incorrect dose administered [Unknown]
  - Overdose [Unknown]

NARRATIVE: CASE EVENT DATE: 20190101
